FAERS Safety Report 9521427 (Version 1)
Quarter: 2013Q3

REPORT INFORMATION
  Report Type: Spontaneous
  Country: ES (occurrence: ES)
  Receive Date: 20130913
  Receipt Date: 20130913
  Transmission Date: 20140515
  Serious: Yes (Hospitalization)
  Sender: FDA-Public Use
  Company Number: ES-PERRIGO-13ES009305

PATIENT
  Age: 78 Year
  Sex: Female

DRUGS (2)
  1. CLINDAMYCIN PALMITATE HYDROCHLORIDE RX 15 MG/ML 3G2 [Suspect]
     Indication: HIP ARTHROPLASTY
     Dosage: UNK, UNK
     Route: 048
  2. LEVOFLOXACIN [Suspect]
     Indication: HIP ARTHROPLASTY
     Dosage: UNK, UNK
     Route: 065

REACTIONS (2)
  - Acute generalised exanthematous pustulosis [Recovered/Resolved]
  - Leukocytosis [Recovered/Resolved]
